FAERS Safety Report 20566692 (Version 1)
Quarter: 2022Q1

REPORT INFORMATION
  Report Type: Spontaneous
  Country: US (occurrence: None)
  Receive Date: 20220307
  Receipt Date: 20220307
  Transmission Date: 20220423
  Serious: Yes (Disabling, Other)
  Sender: FDA-Public Use
  Company Number: None

PATIENT
  Age: 49 Year
  Sex: Female
  Weight: 114.75 kg

DRUGS (1)
  1. SOTROVIMAB [Suspect]
     Active Substance: SOTROVIMAB
     Indication: COVID-19
     Dosage: OTHER QUANTITY : 1 INFUSION;?OTHER FREQUENCY : ONCE;?
     Route: 042
     Dates: start: 20211101, end: 20211101

REACTIONS (4)
  - Tachycardia [None]
  - Fatigue [None]
  - Muscle spasms [None]
  - Cardiac disorder [None]

NARRATIVE: CASE EVENT DATE: 20211110
